FAERS Safety Report 9746262 (Version 2)
Quarter: 2014Q1

REPORT INFORMATION
  Report Type: Spontaneous
  Country: US (occurrence: US)
  Receive Date: 20131211
  Receipt Date: 20140218
  Transmission Date: 20141002
  Serious: Yes (Other)
  Sender: FDA-Public Use
  Company Number: US-CELGENEUS-163-21880-13120571

PATIENT
  Sex: Female

DRUGS (25)
  1. REVLIMID [Suspect]
     Indication: PLASMA CELL MYELOMA
     Dosage: 10 MILLIGRAM
     Route: 048
     Dates: start: 20120513, end: 2012
  2. REVLIMID [Suspect]
     Dosage: 15 MILLIGRAM
     Route: 048
     Dates: start: 201207, end: 2013
  3. VELCADE [Concomitant]
     Indication: PLASMA CELL MYELOMA
     Route: 065
     Dates: start: 20111025
  4. VELCADE [Concomitant]
     Route: 058
     Dates: start: 20130726
  5. DEXAMETHASONE [Concomitant]
     Indication: PLASMA CELL MYELOMA
     Route: 065
     Dates: start: 20111025
  6. DEXAMETHASONE [Concomitant]
     Route: 065
     Dates: start: 20130726
  7. AREDIA [Concomitant]
     Indication: PRODUCT USED FOR UNKNOWN INDICATION
     Route: 041
  8. ATIVAN [Concomitant]
     Indication: NAUSEA
     Route: 048
  9. ATIVAN [Concomitant]
     Indication: ANXIETY
  10. CITRACAL [Concomitant]
     Indication: PRODUCT USED FOR UNKNOWN INDICATION
     Dosage: 1900 MILLIGRAM
     Route: 048
  11. COMPAZINE [Concomitant]
     Indication: NAUSEA
     Route: 048
  12. COUMADIN [Concomitant]
     Indication: PRODUCT USED FOR UNKNOWN INDICATION
     Dosage: 5 MILLIGRAM
     Route: 048
  13. CYANOCOBALAMIN [Concomitant]
     Indication: PRODUCT USED FOR UNKNOWN INDICATION
     Route: 030
  14. LASIX [Concomitant]
     Indication: OEDEMA
     Dosage: 20 MILLIGRAM
     Route: 048
  15. LASIX [Concomitant]
     Indication: WEIGHT INCREASED
  16. LOMOTIL [Concomitant]
     Indication: DIARRHOEA
     Dosage: 8 TABLET
     Route: 048
  17. MELPHALAN [Concomitant]
     Indication: PRODUCT USED FOR UNKNOWN INDICATION
     Route: 048
  18. NADOLOL [Concomitant]
     Indication: PRODUCT USED FOR UNKNOWN INDICATION
     Dosage: 40 MILLIGRAM
     Route: 048
  19. NYSTATIN ELIXIR [Concomitant]
     Indication: PRODUCT USED FOR UNKNOWN INDICATION
     Dosage: 5 MILLIGRAM
     Route: 048
  20. ONDANSETRON [Concomitant]
     Indication: NAUSEA
     Route: 048
  21. POTASSIUM CHLORIDE [Concomitant]
     Indication: PRODUCT USED FOR UNKNOWN INDICATION
     Dosage: 20 MILLIEQUIVALENTS
     Route: 048
  22. PREDNISONE [Concomitant]
     Route: 048
  23. PRILOSEC [Concomitant]
     Indication: ABDOMINAL PAIN UPPER
     Dosage: 20 MILLIGRAM
     Route: 048
  24. TRAZODONE [Concomitant]
     Indication: INSOMNIA
     Dosage: 50 MILLIGRAM
     Route: 048
  25. VITAMIN C [Concomitant]
     Indication: PRODUCT USED FOR UNKNOWN INDICATION
     Dosage: 250 MILLIGRAM
     Route: 048

REACTIONS (1)
  - Uterine cancer [Recovered/Resolved]
